FAERS Safety Report 17129549 (Version 5)
Quarter: 2023Q1

REPORT INFORMATION
  Report Type: Spontaneous
  Country: US (occurrence: US)
  Receive Date: 20191209
  Receipt Date: 20230301
  Transmission Date: 20230417
  Serious: Yes (Death)
  Sender: FDA-Public Use
  Company Number: US-PFIZER INC-2019528138

PATIENT
  Age: 86 Year
  Sex: Female
  Weight: 54.422 kg

DRUGS (1)
  1. XELJANZ XR [Suspect]
     Active Substance: TOFACITINIB CITRATE
     Indication: Rheumatoid arthritis
     Dosage: 11 MG, 1X/DAY
     Dates: start: 201910

REACTIONS (3)
  - Death [Fatal]
  - Urinary tract infection [Unknown]
  - Hypoacusis [Unknown]

NARRATIVE: CASE EVENT DATE: 20191203
